FAERS Safety Report 14965725 (Version 3)
Quarter: 2018Q3

REPORT INFORMATION
  Report Type: Report from Study
  Country: US (occurrence: US)
  Receive Date: 20180602
  Receipt Date: 20180929
  Transmission Date: 20181010
  Serious: No
  Sender: FDA-Public Use
  Company Number: PHEH2018US021087

PATIENT
  Age: 34 Year
  Sex: Female

DRUGS (1)
  1. COSENTYX [Suspect]
     Active Substance: SECUKINUMAB
     Indication: PSORIASIS
     Dosage: 300 MG, QMO
     Route: 058

REACTIONS (6)
  - Upper limb fracture [Unknown]
  - Therapeutic response decreased [Unknown]
  - Road traffic accident [Unknown]
  - Pain in extremity [Unknown]
  - Blister [Unknown]
  - Burning sensation [Unknown]

NARRATIVE: CASE EVENT DATE: 201806
